FAERS Safety Report 5869353-1 (Version None)
Quarter: 2008Q3

REPORT INFORMATION
  Report Type: 
  Country: None (occurrence: None)
  Receive Date: 20080828
  Receipt Date: 20080812
  Transmission Date: 20090109
  Serious: Yes (Life-Threatening, Hospitalization)
  Sender: FDA-Public Use
  Company Number: DSA_32288_2008

PATIENT
  Sex: Female

DRUGS (2)
  1. LORAZEPAM [Suspect]
     Dosage: NOT THE PRESCRIBED AMOUNT ORAL
     Route: 048
     Dates: start: 20071228, end: 20071228
  2. DILATREND [Concomitant]

REACTIONS (5)
  - DEPRESSED MOOD [None]
  - GENERAL PHYSICAL HEALTH DETERIORATION [None]
  - INTENTIONAL OVERDOSE [None]
  - SOMNOLENCE [None]
  - SUICIDE ATTEMPT [None]
